FAERS Safety Report 9272250 (Version 2)
Quarter: 2013Q2

REPORT INFORMATION
  Report Type: Spontaneous
  Country: US (occurrence: US)
  Receive Date: 20130506
  Receipt Date: 20130510
  Transmission Date: 20140414
  Serious: Yes (Death, Hospitalization)
  Sender: FDA-Public Use
  Company Number: PHHY2013US043710

PATIENT
  Age: 68 Year
  Sex: Male

DRUGS (2)
  1. ACETYLSALICYLIC ACID [Suspect]
     Indication: ANTIPLATELET THERAPY
  2. METOPROLOL [Concomitant]
     Dosage: 100 MG DAILY

REACTIONS (8)
  - Death [Fatal]
  - Thrombosis in device [Unknown]
  - Coronary artery occlusion [Unknown]
  - Chest pain [Unknown]
  - Cardiac arrest [Unknown]
  - Loss of consciousness [Recovered/Resolved]
  - Acute myocardial infarction [Unknown]
  - Ventricular fibrillation [Unknown]
